FAERS Safety Report 5285066-1 (Version None)
Quarter: 2007Q2

REPORT INFORMATION
  Report Type: 
  Country: None (occurrence: None)
  Receive Date: 20070403
  Receipt Date: 20070323
  Transmission Date: 20071010
  Serious: Yes (Hospitalization)
  Sender: FDA-Public Use
  Company Number: US-GILEAD-2007-0011741

PATIENT
  Sex: Female
  Weight: 77 kg

DRUGS (5)
  1. DAUNOXOME [Suspect]
     Indication: ACUTE LYMPHOCYTIC LEUKAEMIA
     Route: 042
     Dates: start: 20050802
  2. ELSPAR [Suspect]
     Route: 030
     Dates: start: 20050802
  3. METHOTREXATE [Suspect]
     Route: 037
     Dates: start: 20050802
  4. PREDNISONE [Suspect]
     Route: 048
     Dates: start: 20050802
  5. VINCRISTINE SULFATE [Suspect]
     Route: 042
     Dates: start: 20050802

REACTIONS (1)
  - PNEUMONIA [None]
